FAERS Safety Report 15990277 (Version 1)
Quarter: 2019Q1

REPORT INFORMATION
  Report Type: Spontaneous
  Country: US (occurrence: US)
  Receive Date: 20190129
  Receipt Date: 20190129
  Transmission Date: 20190418
  Serious: Yes (Disabling)
  Sender: FDA-Public Use
  Company Number: None

PATIENT
  Age: 15 Year
  Sex: Male
  Weight: 52.16 kg

DRUGS (2)
  1. LAZARUS NATURALS CBD CAPSULES 2000MG CBD [Suspect]
     Active Substance: CANNABIDIOL
     Indication: SEIZURE
     Dates: start: 20190117, end: 20190120
  2. LAZARUS NATURALS CBD CAPSULES 2000MG CBD [Suspect]
     Active Substance: CANNABIDIOL
     Indication: ANXIETY
     Dates: start: 20190117, end: 20190120

REACTIONS (6)
  - Dizziness [None]
  - Disorientation [None]
  - Confusional state [None]
  - Somnolence [None]
  - Lethargy [None]
  - Product formulation issue [None]

NARRATIVE: CASE EVENT DATE: 20190117
